FAERS Safety Report 6871095-0 (Version None)
Quarter: 2010Q3

REPORT INFORMATION
  Report Type: 
  Country: None (occurrence: None)
  Receive Date: 20100721
  Receipt Date: 20100707
  Transmission Date: 20110219
  Serious: Yes (Hospitalization, Disabling)
  Sender: FDA-Public Use
  Company Number: 2010P1000213

PATIENT
  Age: 57 Year
  Sex: Male

DRUGS (2)
  1. FENTANYL [Suspect]
     Indication: PROCEDURAL PAIN
     Dosage: 2 UG/ML; ED
     Route: 008
  2. LEVOBUPIVACAINE (NO PREF. NAME) [Suspect]
     Indication: PROCEDURAL PAIN
     Dosage: 1 MG/ML; ED
     Route: 008

REACTIONS (2)
  - INFUSION RELATED REACTION [None]
  - PARALYSIS [None]
